FAERS Safety Report 4334677-6 (Version None)
Quarter: 2004Q1

REPORT INFORMATION
  Report Type: 
  Country: None (occurrence: None)
  Receive Date: 20040329
  Receipt Date: 20031208
  Transmission Date: 20041129
  Serious: No
  Sender: FDA-Public Use
  Company Number: 03P-163-0244271

PATIENT
  Age: 56 Year
  Sex: Female

DRUGS (9)
  1. HUMIRA [Suspect]
     Indication: RHEUMATOID ARTHRITIS
     Dosage: 40 MG, 1 IN 2 WK, SUBCUTANEOUS
     Route: 058
     Dates: start: 20030722, end: 20030930
  2. LEFLUNOMIDE [Concomitant]
  3. HYDROXYCHLOROQUINE PHOSPHATE [Concomitant]
  4. MELOXICAM [Concomitant]
  5. SULFASALAZINE [Concomitant]
  6. CONJUGATED ESTROGEN [Concomitant]
  7. PANTOPRAZOLE [Concomitant]
  8. POTASSIUM [Concomitant]
  9. FUROSEMIDE [Concomitant]

REACTIONS (2)
  - DIFFICULTY IN WALKING [None]
  - PAIN IN EXTREMITY [None]
